FAERS Safety Report 5559439-3 (Version None)
Quarter: 2007Q4

REPORT INFORMATION
  Report Type: 
  Country: None (occurrence: None)
  Receive Date: 20071214
  Receipt Date: 20071001
  Transmission Date: 20080405
  Serious: No
  Sender: FDA-Public Use
  Company Number: US-ABBOTT-07P-163-0419319-00

PATIENT
  Sex: Female
  Weight: 118 kg

DRUGS (4)
  1. HUMIRA [Suspect]
     Indication: CROHN'S DISEASE
     Route: 058
     Dates: start: 20070728, end: 20070924
  2. MESALAMINE [Concomitant]
     Indication: DRUG USE FOR UNKNOWN INDICATION
  3. LANSOPRAZOLE [Concomitant]
     Indication: DRUG USE FOR UNKNOWN INDICATION
  4. BYETTA [Concomitant]
     Indication: DRUG USE FOR UNKNOWN INDICATION

REACTIONS (2)
  - HYPOAESTHESIA [None]
  - PARAESTHESIA [None]
